FAERS Safety Report 10236098 (Version 1)
Quarter: 2014Q2

REPORT INFORMATION
  Report Type: Spontaneous
  Country: JP (occurrence: JP)
  Receive Date: 20140613
  Receipt Date: 20140613
  Transmission Date: 20141212
  Serious: Yes (Hospitalization, Other)
  Sender: FDA-Public Use
  Company Number: JP-WATSON-2014-13179

PATIENT
  Age: 58 Year
  Sex: Female

DRUGS (2)
  1. TAMOXIFEN (UNKNOWN) [Suspect]
     Indication: BREAST CANCER STAGE II
     Dosage: 20 MG, DAILY FOR 5 YEARS
     Route: 065
  2. TOREMIFENE [Suspect]
     Indication: BREAST CANCER STAGE II
     Dosage: 80 MG, DAILY FOR 1.5 YEARS
     Route: 065

REACTIONS (1)
  - Ovarian granulosa cell tumour [Recovered/Resolved]
